FAERS Safety Report 4283546-9 (Version None)
Quarter: 2004Q1

REPORT INFORMATION
  Report Type: 
  Country: None (occurrence: None)
  Receive Date: 20040121
  Receipt Date: 20030418
  Transmission Date: 20041129
  Serious: Yes (Other)
  Sender: FDA-Public Use
  Company Number: A03200300813

PATIENT
  Sex: Female
  Weight: 52.1637 kg

DRUGS (23)
  1. PLAVIX [Suspect]
     Indication: CEREBROVASCULAR ACCIDENT
     Dosage: 75 MG QD ORAL
     Route: 048
     Dates: start: 19980101, end: 20010318
  2. ACETYLSALICYLIC ACID SRT [Concomitant]
  3. VERAPAMIL [Concomitant]
  4. LEVOTHYROXINE SODIUM [Concomitant]
  5. ISOSORBIDE MONONITRATE [Concomitant]
  6. ONE-A-DAY [Concomitant]
  7. CALCIUM WITH VITAMIN D [Concomitant]
  8. VITAMIN E [Concomitant]
  9. FLUOXETINE HYDROCHLORIDE [Concomitant]
  10. LORAZEPAM [Concomitant]
  11. RABEPRAZOLE SODIUM [Concomitant]
  12. CELECOXIB [Concomitant]
  13. ALBUTEROL [Concomitant]
  14. EXCEDRIN ASPIRIN FREE [Concomitant]
  15. PARACETAMOL [Concomitant]
  16. EXCEDRIM P.M. [Concomitant]
  17. TYLENOL P.M. [Concomitant]
  18. DOXYLAMINE SUCCINATE [Concomitant]
  19. GLYCERYL TRINITRATE [Concomitant]
  20. MILK OF MAGNESIA TAB [Concomitant]
  21. BISACODYL [Concomitant]
  22. CALCIUM CARBONATE [Concomitant]
  23. LOPERAMIDE HYDROCHLORIDE [Concomitant]

REACTIONS (2)
  - CEREBROVASCULAR ACCIDENT [None]
  - DRUG INEFFECTIVE [None]
